FAERS Safety Report 23906747 (Version 2)
Quarter: 2025Q2

REPORT INFORMATION
  Report Type: Spontaneous
  Country: CN (occurrence: CN)
  Receive Date: 20240528
  Receipt Date: 20250610
  Transmission Date: 20250716
  Serious: Yes (Other)
  Sender: RANBAXY
  Company Number: CN-SUN PHARMACEUTICAL INDUSTRIES LTD-2024R1-447760

PATIENT
  Sex: Male
  Weight: 70 kg

DRUGS (1)
  1. PALIPERIDONE [Suspect]
     Active Substance: PALIPERIDONE
     Indication: Schizophrenia
     Dosage: 6 MILLIGRAM, QD
     Route: 048
     Dates: start: 20240510, end: 20240516

REACTIONS (2)
  - Extrapyramidal disorder [Recovered/Resolved]
  - Anxiety [Recovered/Resolved]
